FAERS Safety Report 20164755 (Version 2)
Quarter: 2021Q4

REPORT INFORMATION
  Report Type: Spontaneous
  Country: CN (occurrence: CN)
  Receive Date: 20211209
  Receipt Date: 20211209
  Transmission Date: 20220303
  Serious: Yes (Hospitalization)
  Sender: FDA-Public Use
  Company Number: CN-Taiho Oncology Inc-CN-2021-00107

PATIENT
  Age: 72 Year
  Sex: Female
  Weight: 46.5 kg

DRUGS (6)
  1. LONSURF [Suspect]
     Active Substance: TIPIRACIL HYDROCHLORIDE\TRIFLURIDINE
     Indication: Colorectal cancer
     Dosage: 5 DAYS ON, 2 DAYS OFF.
     Route: 048
     Dates: start: 20211029, end: 20211109
  2. ASPIRIN [Suspect]
     Active Substance: ASPIRIN
     Indication: Coronary artery disease
     Dosage: DOSAGE UNKNOWN
     Route: 048
     Dates: start: 2016, end: 20211114
  3. METOPROLOL [Concomitant]
     Active Substance: METOPROLOL
     Indication: Hypertension
     Dosage: DOSAGE UNKNOWN
     Route: 048
     Dates: start: 2016
  4. AMLODIPINE BESYLATE [Concomitant]
     Active Substance: AMLODIPINE BESYLATE
     Indication: Hypertension
     Dosage: DOSAGE UNKNOWN
     Route: 048
     Dates: start: 202104
  5. GLIPIZIDE SUSTAINED RELEASE CAPSULES [Concomitant]
     Indication: Diabetes mellitus
     Dosage: DOSAGE UNKNOWN.
     Route: 048
     Dates: start: 2016
  6. ROSUVASTATIN CALCIUM [Concomitant]
     Active Substance: ROSUVASTATIN CALCIUM
     Indication: Hyperlipidaemia
     Dosage: DOSAGE UNKNOWN.
     Route: 048
     Dates: start: 2016

REACTIONS (1)
  - Upper gastrointestinal haemorrhage [Recovered/Resolved]

NARRATIVE: CASE EVENT DATE: 20211114
